FAERS Safety Report 14166682 (Version 1)
Quarter: 2017Q4

REPORT INFORMATION
  Report Type: Spontaneous
  Country: FR (occurrence: FR)
  Receive Date: 20171107
  Receipt Date: 20171107
  Transmission Date: 20180321
  Serious: Yes (Hospitalization, Other)
  Sender: FDA-Public Use
  Company Number: FR-MERCK KGAA-2033470

PATIENT
  Age: 59 Year
  Sex: Female

DRUGS (2)
  1. METFORMINE [Concomitant]
     Active Substance: METFORMIN HYDROCHLORIDE
  2. NOVOTHYROX [Suspect]
     Active Substance: LEVOTHYROXINE SODIUM
     Indication: HYPOTHYROIDISM
     Dates: start: 201707

REACTIONS (6)
  - Malaise [None]
  - Arrhythmia [None]
  - Dyspnoea exertional [None]
  - Fatigue [None]
  - Seizure [None]
  - Chest discomfort [None]

NARRATIVE: CASE EVENT DATE: 2017
